FAERS Safety Report 14524357 (Version 1)
Quarter: 2018Q1

REPORT INFORMATION
  Report Type: Spontaneous
  Country: US (occurrence: US)
  Receive Date: 20180213
  Receipt Date: 20180213
  Transmission Date: 20180509
  Serious: No
  Sender: FDA-Public Use
  Company Number: US-PFIZER INC-2018061152

PATIENT
  Age: 41 Year
  Sex: Female

DRUGS (3)
  1. SIROLIMUS. [Suspect]
     Active Substance: SIROLIMUS
     Indication: TUBEROUS SCLEROSIS COMPLEX
  2. SIROLIMUS. [Suspect]
     Active Substance: SIROLIMUS
     Indication: LYMPHANGIOLEIOMYOMATOSIS
     Dosage: 2 MG, 1X/DAY
     Route: 048
     Dates: start: 201712
  3. SIROLIMUS. [Suspect]
     Active Substance: SIROLIMUS
     Indication: NEOPLASM

REACTIONS (3)
  - Therapeutic response unexpected [Recovering/Resolving]
  - Product use in unapproved indication [Unknown]
  - Pre-existing condition improved [Recovering/Resolving]

NARRATIVE: CASE EVENT DATE: 201712
